FAERS Safety Report 21043428 (Version 2)
Quarter: 2022Q3

REPORT INFORMATION
  Report Type: Spontaneous
  Country: CN (occurrence: CN)
  Receive Date: 20220705
  Receipt Date: 20220721
  Transmission Date: 20221027
  Serious: Yes (Other)
  Sender: FDA-Public Use
  Company Number: CN-PFIZER INC-PV202200013572

PATIENT
  Age: 49 Year
  Sex: Male

DRUGS (2)
  1. ZYVOX [Suspect]
     Active Substance: LINEZOLID
     Indication: Intracranial infection
     Dosage: 0.6 G, 2X/DAY
     Route: 048
     Dates: start: 20220606, end: 20220619
  2. LINEZOLID [Suspect]
     Active Substance: LINEZOLID
     Indication: Intracranial infection
     Dosage: 0.6 G, 2X/DAY
     Route: 041
     Dates: start: 20220602, end: 20220605

REACTIONS (7)
  - Myelosuppression [Unknown]
  - Granulocyte count decreased [Unknown]
  - Lymphatic disorder [Recovering/Resolving]
  - Blood disorder [Recovering/Resolving]
  - White blood cell count decreased [Recovering/Resolving]
  - Neutrophil count decreased [Recovering/Resolving]
  - Anaemia [Unknown]

NARRATIVE: CASE EVENT DATE: 20220619
